FAERS Safety Report 5076982-4 (Version None)
Quarter: 2006Q3

REPORT INFORMATION
  Report Type: 
  Country: None (occurrence: None)
  Receive Date: 20060810
  Receipt Date: 20060801
  Transmission Date: 20061208
  Serious: Yes (Other)
  Sender: FDA-Public Use
  Company Number: FR-GLAXOSMITHKLINE-B0433624A

PATIENT
  Age: 56 Year
  Sex: Female
  Weight: 48 kg

DRUGS (2)
  1. ARIXTRA [Suspect]
     Indication: DEEP VEIN THROMBOSIS
     Dosage: 5MG PER DAY
     Route: 058
     Dates: start: 20060701, end: 20060701
  2. ARIXTRA [Suspect]
     Dosage: 7.5MG PER DAY
     Route: 058
     Dates: start: 20060701

REACTIONS (3)
  - DEEP VEIN THROMBOSIS [None]
  - DRUG INEFFECTIVE [None]
  - OEDEMA PERIPHERAL [None]
